FAERS Safety Report 12824806 (Version 2)
Quarter: 2017Q2

REPORT INFORMATION
  Report Type: Spontaneous
  Country: US (occurrence: US)
  Receive Date: 20161007
  Receipt Date: 20170621
  Transmission Date: 20170830
  Serious: Yes (Hospitalization)
  Sender: FDA-Public Use
  Company Number: US-ASTRAZENECA-2016SF04526

PATIENT
  Age: 25821 Day
  Sex: Female
  Weight: 71.7 kg

DRUGS (6)
  1. SPIRIVA [Concomitant]
     Active Substance: TIOTROPIUM BROMIDE MONOHYDRATE
     Indication: CHRONIC OBSTRUCTIVE PULMONARY DISEASE
     Route: 055
     Dates: start: 2013
  2. OXYGEN. [Concomitant]
     Active Substance: OXYGEN
     Indication: CHRONIC OBSTRUCTIVE PULMONARY DISEASE
     Dosage: 3.0L CONTINUOUSLY
     Route: 055
     Dates: start: 201312
  3. ALBUTEROL/IPRATROPIUM BROMIDE NEBULIZER SOLUTION [Concomitant]
     Indication: SECRETION DISCHARGE
     Dosage: 0.5 MG./3 MG. PER 3 ML.AS REQUIRED
     Route: 055
     Dates: start: 2013
  4. PROAIR INHALER [Concomitant]
     Active Substance: ALBUTEROL SULFATE
     Indication: CHRONIC OBSTRUCTIVE PULMONARY DISEASE
     Dosage: 90.0UG AS REQUIRED
     Route: 055
     Dates: start: 2012
  5. ALBUTEROL/IPRATROPIUM BROMIDE NEBULIZER SOLUTION [Concomitant]
     Indication: DYSPNOEA
     Dosage: 0.5 MG./3 MG. PER 3 ML.AS REQUIRED
     Route: 055
     Dates: start: 2013
  6. SYMBICORT [Suspect]
     Active Substance: BUDESONIDE\FORMOTEROL FUMARATE DIHYDRATE
     Indication: CHRONIC OBSTRUCTIVE PULMONARY DISEASE
     Dosage: 160/4.5 MCG, TWO PUFFS TWO TIMES DAILY.
     Route: 055
     Dates: start: 2009

REACTIONS (4)
  - Circumstance or information capable of leading to medication error [Unknown]
  - Intentional device misuse [Unknown]
  - Device malfunction [Unknown]
  - Pneumothorax [Unknown]

NARRATIVE: CASE EVENT DATE: 20160525
